FAERS Safety Report 15259579 (Version 1)
Quarter: 2020Q3

REPORT INFORMATION
  Report Type: Report from Study
  Country: IT (occurrence: IT)
  Receive Date: 20180809
  Receipt Date: 20180809
  Transmission Date: 20201104
  Serious: Yes (Hospitalization)
  Sender: FDA-Public Use
  Company Number: IT-B.I. PHARMACEUTICALS,INC./RIDGEFIELD-2018-12-001603

PATIENT
  Age: 61 Year
  Sex: Male

DRUGS (3)
  1. ETORICOXIB. [Suspect]
     Active Substance: ETORICOXIB
     Indication: PAIN
     Dosage: ; IN TOTAL
     Route: 048
     Dates: start: 20180426, end: 20180426
  2. XANAX [Suspect]
     Active Substance: ALPRAZOLAM
     Indication: ANXIETY
     Dosage: ; IN TOTAL
     Route: 048
     Dates: start: 20180426, end: 20180426
  3. MICARDIS PLUS [Suspect]
     Active Substance: HYDROCHLOROTHIAZIDE\TELMISARTAN
     Indication: ESSENTIAL HYPERTENSION
     Dosage: ; IN TOTAL, 80 MG/12.5 MG TABLETS
     Route: 048
     Dates: start: 20180426, end: 20180426

REACTIONS (3)
  - Sluggishness [Recovered/Resolved]
  - Drug abuse [Recovered/Resolved]
  - Altered state of consciousness [Recovered/Resolved]

NARRATIVE: CASE EVENT DATE: 20180426
